FAERS Safety Report 6491837-6 (Version None)
Quarter: 2009Q4

REPORT INFORMATION
  Report Type: 
  Country: None (occurrence: None)
  Receive Date: 20091210
  Receipt Date: 20091130
  Transmission Date: 20100525
  Serious: Yes (Hospitalization, Other)
  Sender: FDA-Public Use
  Company Number: VAL_00341_2009

PATIENT
  Age: 25 Year
  Sex: Male

DRUGS (4)
  1. CALCITRIOL [Suspect]
     Indication: BLOOD PARATHYROID HORMONE INCREASED
     Dosage: (1 PG ORAL)
     Route: 048
  2. CINACALCET HYDROCHLORIDE [Suspect]
     Indication: BLOOD PARATHYROID HORMONE INCREASED
     Dosage: (30 MG)
  3. CALCIUM CARBONATE [Concomitant]
  4. OSCAL / 00108001/ [Concomitant]

REACTIONS (6)
  - BLOOD PARATHYROID HORMONE INCREASED [None]
  - HUNGRY BONE SYNDROME [None]
  - HYPOCALCAEMIA [None]
  - PARATHYROID TUMOUR BENIGN [None]
  - POST PROCEDURAL COMPLICATION [None]
  - TRANSPLANT [None]
